FAERS Safety Report 19050730 (Version 1)
Quarter: 2021Q1

REPORT INFORMATION
  Report Type: Spontaneous
  Country: US (occurrence: US)
  Receive Date: 20210323
  Receipt Date: 20210323
  Transmission Date: 20210420
  Serious: Yes (Other)
  Sender: FDA-Public Use
  Company Number: US-ASTRAZENECA-2021A161895

PATIENT
  Sex: Male
  Weight: 59 kg

DRUGS (3)
  1. FASENRA [Suspect]
     Active Substance: BENRALIZUMAB
     Indication: ASTHMA
     Route: 058
     Dates: start: 202101
  2. PREDNISONE. [Concomitant]
     Active Substance: PREDNISONE
     Route: 065
  3. FASENRA [Suspect]
     Active Substance: BENRALIZUMAB
     Indication: ASTHMA
     Route: 058
     Dates: start: 2019, end: 202004

REACTIONS (7)
  - Deep vein thrombosis [Unknown]
  - Urinary tract infection [Unknown]
  - Immobile [Unknown]
  - Memory impairment [Unknown]
  - Product dose omission issue [Unknown]
  - Cerebrovascular accident [Unknown]
  - Ill-defined disorder [Unknown]
